FAERS Safety Report 24529193 (Version 1)
Quarter: 2024Q4

REPORT INFORMATION
  Report Type: Spontaneous
  Country: FR (occurrence: FR)
  Receive Date: 20241021
  Receipt Date: 20241021
  Transmission Date: 20250114
  Serious: Yes (Hospitalization, Other)
  Sender: ALEXION PHARMACEUTICALS
  Company Number: None

PATIENT
  Age: 25 Year

DRUGS (10)
  1. QUETIAPINE FUMARATE [Suspect]
     Active Substance: QUETIAPINE FUMARATE
     Dosage: 2 OR 3 PACKS
  2. QUETIAPINE FUMARATE [Suspect]
     Active Substance: QUETIAPINE FUMARATE
     Dosage: 2 OR 3 PACKS
  3. QUETIAPINE FUMARATE [Suspect]
     Active Substance: QUETIAPINE FUMARATE
     Dosage: 2 OR 3 PACKS
  4. QUETIAPINE FUMARATE [Suspect]
     Active Substance: QUETIAPINE FUMARATE
     Dosage: 2 OR 3 PACKS
  5. DIAZEPAM [Suspect]
     Active Substance: DIAZEPAM
     Dosage: 1 AND A HALF PACKS
  6. DIAZEPAM [Suspect]
     Active Substance: DIAZEPAM
     Dosage: 1 AND A HALF PACKS
  7. DIAZEPAM [Suspect]
     Active Substance: DIAZEPAM
     Dosage: UNK
  8. DIAZEPAM [Suspect]
     Active Substance: DIAZEPAM
     Dosage: UNK
  9. FLUOXETINE [Suspect]
     Active Substance: FLUOXETINE HYDROCHLORIDE
     Dosage: 1 AND A HALF PACKS
  10. FLUOXETINE [Suspect]
     Active Substance: FLUOXETINE HYDROCHLORIDE
     Dosage: 1 AND A HALF PACKS

REACTIONS (1)
  - Toxicity to various agents [Unknown]
